FAERS Safety Report 18054497 (Version 2)
Quarter: 2020Q3

REPORT INFORMATION
  Report Type: Spontaneous
  Country: JP (occurrence: JP)
  Receive Date: 20200722
  Receipt Date: 20200817
  Transmission Date: 20201103
  Serious: Yes (Death, Other)
  Sender: FDA-Public Use
  Company Number: JP-SAKK-2020SA129674AA

PATIENT

DRUGS (6)
  1. FUROSEMIDE. [Concomitant]
     Active Substance: FUROSEMIDE
     Indication: PRODUCT USED FOR UNKNOWN INDICATION
     Dosage: 20 MG PER TIME, 2 TIMES DAILY, MORNING AND EVENING
     Route: 065
     Dates: start: 201404
  2. SEPAMIT [Concomitant]
     Active Substance: NIFEDIPINE
     Indication: PRODUCT USED FOR UNKNOWN INDICATION
     Dosage: 10 MG/DAY, 3 TIMES DAILY
     Route: 065
  3. ENALART [Concomitant]
     Active Substance: ENALAPRIL MALEATE
     Indication: PRODUCT USED FOR UNKNOWN INDICATION
     Dosage: 2.5 MG PER TIME, 2 TIMES DAILY, MORNING AND EVENING
     Route: 065
     Dates: start: 201404
  4. ALDURAZYME [Suspect]
     Active Substance: LARONIDASE
     Indication: MUCOPOLYSACCHARIDOSIS I
     Dosage: DAILY DOSE: 17.4 MG
     Route: 041
     Dates: start: 20070918, end: 20191227
  5. DIGOSIN [Concomitant]
     Active Substance: DIGOXIN
     Indication: PRODUCT USED FOR UNKNOWN INDICATION
     Dosage: 0.09 MG PER TIME, 2 TIMES A DAY IN THE MORNING AND EVENING
     Route: 065
     Dates: start: 201404
  6. ALDACTONE A [Concomitant]
     Active Substance: SPIRONOLACTONE
     Indication: PRODUCT USED FOR UNKNOWN INDICATION
     Dosage: 10 MG PER TIME, 2 TIMES DAILY, MORNING AND EVENING
     Route: 065
     Dates: start: 2014

REACTIONS (1)
  - Cardiac failure [Fatal]

NARRATIVE: CASE EVENT DATE: 201912
